FAERS Safety Report 18376622 (Version 1)
Quarter: 2020Q4

REPORT INFORMATION
  Report Type: Spontaneous
  Country: US (occurrence: US)
  Receive Date: 20201013
  Receipt Date: 20201013
  Transmission Date: 20210114
  Serious: Yes (Other)
  Sender: FDA-Public Use
  Company Number: US-ASTRAZENECA-2018SF65768

PATIENT
  Age: 43 Year
  Sex: Female
  Weight: 66.7 kg

DRUGS (15)
  1. PREVACID 24 HR [Suspect]
     Active Substance: LANSOPRAZOLE
     Dosage: OTC
     Route: 065
  2. WOMENS VITAMIN [Concomitant]
     Dates: start: 2015
  3. PEPCID [Concomitant]
     Active Substance: FAMOTIDINE
     Dates: start: 202002
  4. VITAMIN D3 [Concomitant]
     Active Substance: CHOLECALCIFEROL
     Dates: start: 2015
  5. ROLAIDS [Concomitant]
     Active Substance: CALCIUM CARBONATE\MAGNESIUM HYDROXIDE
     Dosage: 1-3 AS NEEDED
     Dates: start: 2005
  6. BENAZEPRIL [Concomitant]
     Active Substance: BENAZEPRIL HYDROCHLORIDE
     Indication: BLOOD PRESSURE MEASUREMENT
     Dates: start: 2015, end: 2018
  7. CETRIZINE [Concomitant]
     Active Substance: CETIRIZINE HYDROCHLORIDE
     Indication: HYPERSENSITIVITY
     Dates: start: 2015
  8. METAMUCIL [Concomitant]
     Active Substance: PLANTAGO SEED
     Dates: start: 2015
  9. CALTRATE [Concomitant]
     Active Substance: CALCIUM CARBONATE
     Dates: start: 2015
  10. TUMS [Concomitant]
     Active Substance: CALCIUM CARBONATE
     Dosage: 1-3 AS NEEDED
     Dates: start: 2005
  11. PRILOSEC [Suspect]
     Active Substance: OMEPRAZOLE MAGNESIUM
     Indication: GASTROOESOPHAGEAL REFLUX DISEASE
     Dosage: GENERIC
     Route: 065
     Dates: start: 2013, end: 2020
  12. CORICIDIN [Concomitant]
     Indication: NASOPHARYNGITIS
     Dates: start: 2015
  13. PRILOSEC [Suspect]
     Active Substance: OMEPRAZOLE MAGNESIUM
     Indication: GASTROOESOPHAGEAL REFLUX DISEASE
     Dosage: ONCE A DAY
     Route: 048
  14. PRILOSEC OTC [Suspect]
     Active Substance: OMEPRAZOLE MAGNESIUM
     Indication: GASTROOESOPHAGEAL REFLUX DISEASE
     Dosage: TOOK FOR 1 YEAR, ONCE A DAY
     Route: 048
  15. PREVACID [Suspect]
     Active Substance: LANSOPRAZOLE
     Indication: GASTROOESOPHAGEAL REFLUX DISEASE
     Dosage: ONCE A DAY
     Route: 065
     Dates: start: 2010, end: 2013

REACTIONS (3)
  - Acute kidney injury [Not Recovered/Not Resolved]
  - Renal injury [Unknown]
  - Chronic kidney disease [Not Recovered/Not Resolved]

NARRATIVE: CASE EVENT DATE: 2014
